FAERS Safety Report 9704185 (Version 2)
Quarter: 2013Q4

REPORT INFORMATION
  Report Type: Report from Study
  Country: CA (occurrence: CA)
  Receive Date: 20131122
  Receipt Date: 20131203
  Transmission Date: 20140711
  Serious: Yes (Life-Threatening)
  Sender: FDA-Public Use
  Company Number: CA-JNJFOC-20131112421

PATIENT
  Age: 21 Year
  Sex: Female
  Weight: 49.9 kg

DRUGS (3)
  1. REMICADE [Suspect]
     Indication: CROHN^S DISEASE
     Dosage: TREATMENT #3
     Route: 042
     Dates: start: 20131128
  2. REMICADE [Suspect]
     Indication: CROHN^S DISEASE
     Dosage: INDUCTION DOSE
     Route: 042
     Dates: start: 20131017
  3. PREDNISONE [Concomitant]
     Dosage: GIVEN IN TAPERING DOSES, 40 MG - 5 MG UNTIL FINISHED
     Route: 065

REACTIONS (1)
  - Type IV hypersensitivity reaction [Recovering/Resolving]
